FAERS Safety Report 7211048-6 (Version None)
Quarter: 2011Q1

REPORT INFORMATION
  Report Type: 
  Country: None (occurrence: None)
  Receive Date: 20110105
  Receipt Date: 20100701
  Transmission Date: 20110831
  Serious: No
  Sender: FDA-Public Use
  Company Number: US-ABBOTT-10P-163-0655635-00

PATIENT
  Age: 33 Year
  Sex: Male
  Weight: 99.88 kg

DRUGS (6)
  1. TRICOR [Suspect]
     Indication: BLOOD TRIGLYCERIDES INCREASED
     Route: 048
     Dates: start: 20091101
  2. HYDROCHLOROTHIAZIDE [Concomitant]
     Indication: PRODUCT USED FOR UNKNOWN INDICATION
  3. FENOFIBRATE [Suspect]
     Indication: BLOOD TRIGLYCERIDES INCREASED
     Route: 048
  4. BYETTA [Concomitant]
     Indication: TYPE 2 DIABETES MELLITUS
  5. UNKNOWN DIABETIC MEDICATION [Concomitant]
     Indication: TYPE 2 DIABETES MELLITUS
     Dosage: MEDICATION STARTS WITH AN A
  6. LISINOPRIL [Concomitant]
     Indication: HYPERTENSION

REACTIONS (6)
  - DRUG INEFFECTIVE [None]
  - SOMNOLENCE [None]
  - PRURITUS [None]
  - OVERDOSE [None]
  - BLOOD GLUCOSE DECREASED [None]
  - URTICARIA [None]
